FAERS Safety Report 23646961 (Version 4)
Quarter: 2024Q2

REPORT INFORMATION
  Report Type: Spontaneous
  Country: US (occurrence: US)
  Receive Date: 20240319
  Receipt Date: 20240514
  Transmission Date: 20240716
  Serious: Yes (Hospitalization, Other)
  Sender: FDA-Public Use
  Company Number: US-AUROBINDO-AUR-APL-2024-012082

PATIENT
  Age: 63 Year
  Sex: Female

DRUGS (2)
  1. CLOZAPINE [Suspect]
     Active Substance: CLOZAPINE
     Indication: Product used for unknown indication
     Dosage: 200 MILLIGRAM  (250MG AT BEDTIME BROKEN UP INTO 200 MG)
     Route: 048
  2. CLOZAPINE [Suspect]
     Active Substance: CLOZAPINE
     Indication: Product used for unknown indication
     Dosage: 50 MILLIGRAM
     Route: 048

REACTIONS (7)
  - Hospitalisation [Unknown]
  - Type 2 diabetes mellitus [Unknown]
  - Hyperthyroidism [Unknown]
  - Asthenia [Unknown]
  - Anxiety [Unknown]
  - Hypertension [Unknown]
  - Living in residential institution [Unknown]
